FAERS Safety Report 7717124-3 (Version None)
Quarter: 2011Q3

REPORT INFORMATION
  Report Type: 
  Country: None (occurrence: None)
  Receive Date: 20110826
  Receipt Date: 20110826
  Transmission Date: 20111222
  Serious: Yes (Hospitalization)
  Sender: FDA-Public Use
  Company Number: None

PATIENT
  Sex: Female
  Weight: 62.1 kg

DRUGS (1)
  1. INTRON A [Suspect]
     Dosage: 752 MU
     Dates: end: 20110822

REACTIONS (10)
  - CONFUSIONAL STATE [None]
  - HEADACHE [None]
  - INFLUENZA [None]
  - FATIGUE [None]
  - IMPAIRED DRIVING ABILITY [None]
  - CHEST PAIN [None]
  - IMPAIRED SELF-CARE [None]
  - CLOSTRIDIAL INFECTION [None]
  - GASTROINTESTINAL INFECTION [None]
  - DIARRHOEA [None]
